FAERS Safety Report 17443069 (Version 1)
Quarter: 2020Q1

REPORT INFORMATION
  Report Type: Spontaneous
  Country: FI (occurrence: FI)
  Receive Date: 20200221
  Receipt Date: 20200221
  Transmission Date: 20200409
  Serious: Yes (Other)
  Sender: FDA-Public Use
  Company Number: FI-ROCHE-2549985

PATIENT
  Age: 70 Year

DRUGS (6)
  1. TECENTRIQ [Suspect]
     Active Substance: ATEZOLIZUMAB
     Indication: SQUAMOUS CELL CARCINOMA OF LUNG
     Route: 041
  2. PREDNISOLONE. [Suspect]
     Active Substance: PREDNISOLONE
     Indication: SQUAMOUS CELL CARCINOMA OF LUNG
     Dosage: DECREASING DOSE
     Route: 065
  3. CARBOPLATIN. [Suspect]
     Active Substance: CARBOPLATIN
     Indication: SQUAMOUS CELL CARCINOMA OF LUNG
     Dosage: 4 CYCLES FOR 3 MONTHS
     Route: 065
  4. DEXAMETHASONE. [Suspect]
     Active Substance: DEXAMETHASONE
     Indication: SQUAMOUS CELL CARCINOMA OF LUNG
     Dosage: DECREASING DOSE, THEN THERAPY STOPPED
     Route: 065
  5. DOCETAXEL. [Suspect]
     Active Substance: DOCETAXEL
     Indication: SQUAMOUS CELL CARCINOMA OF LUNG
     Route: 065
  6. GEMCITABINE. [Suspect]
     Active Substance: GEMCITABINE
     Indication: SQUAMOUS CELL CARCINOMA OF LUNG
     Dosage: 4 CYCLES FOR 3 MONTHS
     Route: 065

REACTIONS (8)
  - Exfoliative rash [Recovered/Resolved]
  - Erysipelas [Unknown]
  - Neoplasm progression [Recovering/Resolving]
  - Pyelonephritis [Unknown]
  - Leukopenia [Unknown]
  - Erythema [Unknown]
  - Neutropenia [Unknown]
  - Pneumonia [Unknown]
